FAERS Safety Report 7709418-2 (Version None)
Quarter: 2011Q3

REPORT INFORMATION
  Report Type: 
  Country: None (occurrence: None)
  Receive Date: 20110819
  Receipt Date: 20110815
  Transmission Date: 20111222
  Serious: Yes (Other)
  Sender: FDA-Public Use
  Company Number: 2011SP038563

PATIENT
  Age: 60 Year
  Sex: Male

DRUGS (7)
  1. DEPROMEL /00615202/ [Concomitant]
  2. FLUNITRAZEPAM [Concomitant]
  3. SULPIRIDE [Concomitant]
  4. DEMUNATTO [Concomitant]
  5. PROHEPARUM (LIVER HYDROLYSATE COMBINED DRUG) [Concomitant]
  6. REMERON [Suspect]
     Indication: DEPRESSION
     Dosage: 15 MG;QD;PO
     Route: 048
     Dates: start: 20110207
  7. AMITRIPTYLINE HCL [Concomitant]

REACTIONS (1)
  - C-REACTIVE PROTEIN INCREASED [None]
